FAERS Safety Report 9756038 (Version 1)
Quarter: 2013Q4

REPORT INFORMATION
  Report Type: Spontaneous
  Country: FR (occurrence: FR)
  Receive Date: 20131213
  Receipt Date: 20131213
  Transmission Date: 20140711
  Serious: Yes (Other)
  Sender: FDA-Public Use
  Company Number: FR-GLAXOSMITHKLINE-B0944842A

PATIENT
  Age: 64 Year
  Sex: Female

DRUGS (4)
  1. SERETIDE [Suspect]
     Indication: ASTHMATIC CRISIS
     Dosage: 1PUFF TWICE PER DAY
     Route: 055
  2. BRICANYL [Concomitant]
     Indication: ASTHMA
     Route: 055
  3. RHINOCORT [Concomitant]
     Route: 065
  4. AERIUS [Concomitant]
     Route: 065

REACTIONS (6)
  - Asthmatic crisis [Recovered/Resolved]
  - Dyspnoea [Recovered/Resolved]
  - Respiratory disorder [Recovered/Resolved]
  - Drug ineffective [Unknown]
  - Off label use [Unknown]
  - Overdose [Unknown]
